FAERS Safety Report 7007741-0 (Version None)
Quarter: 2010Q3

REPORT INFORMATION
  Report Type: 
  Country: None (occurrence: None)
  Receive Date: 20100920
  Receipt Date: 20100907
  Transmission Date: 20110219
  Serious: Yes (Hospitalization)
  Sender: FDA-Public Use
  Company Number: ADR-UNK-009

PATIENT
  Age: 50 Year
  Sex: Male
  Weight: 111.1313 kg

DRUGS (5)
  1. HYDRALAZINE HCL [Suspect]
     Indication: HYPERTENSION
     Dosage: 50 MG BID, ORAL
     Route: 048
     Dates: start: 20100721, end: 20100811
  2. CLONIDINE [Concomitant]
  3. ALEGRA [Concomitant]
  4. NASONEX [Concomitant]
  5. DOXYCYCLINE [Concomitant]

REACTIONS (7)
  - ARTHRALGIA [None]
  - CHILLS [None]
  - HEADACHE [None]
  - NAUSEA [None]
  - PHOTOSENSITIVITY REACTION [None]
  - PYREXIA [None]
  - VOMITING [None]
